FAERS Safety Report 5400563-3 (Version None)
Quarter: 2007Q3

REPORT INFORMATION
  Report Type: 
  Country: None (occurrence: None)
  Receive Date: 20070730
  Receipt Date: 20070719
  Transmission Date: 20080115
  Serious: Yes (Hospitalization, Other)
  Sender: FDA-Public Use
  Company Number: FR-GENENTECH-244076

PATIENT
  Sex: Male
  Weight: 75 kg

DRUGS (10)
  1. RITUXAN [Suspect]
     Indication: RHEUMATOID ARTHRITIS
     Dosage: 1 G, UNK
     Route: 042
     Dates: start: 20070615, end: 20070703
  2. QUESTRAN [Interacting]
     Indication: THERAPEUTIC PROCEDURE
     Dosage: 6 G, UNK
     Route: 048
     Dates: start: 20070614, end: 20070628
  3. TRAMADOL HCL [Concomitant]
     Indication: DRUG USE FOR UNKNOWN INDICATION
     Dosage: 150 UNK, UNK
     Dates: start: 20060101
  4. PERINDOPRIL ERBUMINE [Concomitant]
     Indication: DRUG USE FOR UNKNOWN INDICATION
     Dosage: 5X1.5 UNK, UNK
     Dates: start: 20060101
  5. ATORVASTATIN CALCIUM [Concomitant]
     Indication: DRUG USE FOR UNKNOWN INDICATION
     Dates: start: 20060101
  6. NEXIUM [Concomitant]
     Indication: DRUG USE FOR UNKNOWN INDICATION
     Dosage: 40 UNK, UNK
     Dates: start: 20050101
  7. VOLTAREN [Concomitant]
     Indication: DRUG USE FOR UNKNOWN INDICATION
     Dosage: 75 UNK, QD
     Dates: start: 20070101
  8. DETENSIEL [Concomitant]
     Indication: DRUG USE FOR UNKNOWN INDICATION
     Dosage: 10 UNK, QD
     Dates: start: 20050101
  9. EFFEXOR [Concomitant]
     Indication: DRUG USE FOR UNKNOWN INDICATION
     Dosage: 37.5 UNK, BID
     Dates: start: 20070101
  10. MODURETIC 5-50 [Concomitant]
     Indication: DRUG USE FOR UNKNOWN INDICATION
     Dosage: 1 UNK, QD
     Dates: start: 20050101

REACTIONS (5)
  - ABDOMINAL PAIN [None]
  - C-REACTIVE PROTEIN INCREASED [None]
  - DRUG INTERACTION [None]
  - HEPATIC ENZYME ABNORMAL [None]
  - RED BLOOD CELL SEDIMENTATION RATE INCREASED [None]
